FAERS Safety Report 25522517 (Version 1)
Quarter: 2025Q3

REPORT INFORMATION
  Report Type: Spontaneous
  Country: EU (occurrence: EU)
  Receive Date: 20250707
  Receipt Date: 20250707
  Transmission Date: 20251020
  Serious: Yes (Disabling)
  Sender: GLAXOSMITHKLINE
  Company Number: EU-GSK-DE2025EME066241

PATIENT
  Sex: Female
  Weight: 57 kg

DRUGS (1)
  1. NUCALA [Suspect]
     Active Substance: MEPOLIZUMAB
     Indication: Asthma
     Dosage: UNK, Q2W

REACTIONS (1)
  - Alopecia [Not Recovered/Not Resolved]
